FAERS Safety Report 5132624-0 (Version None)
Quarter: 2006Q4

REPORT INFORMATION
  Report Type: 
  Country: None (occurrence: None)
  Receive Date: 20061023
  Receipt Date: 20060906
  Transmission Date: 20070319
  Serious: Yes (Hospitalization)
  Sender: FDA-Public Use
  Company Number: PHEH2006US11406

PATIENT
  Age: 75 Year
  Sex: Male

DRUGS (1)
  1. ENABLEX [Suspect]
     Indication: URINARY INCONTINENCE
     Dosage: 7.5 MG, QD
     Dates: start: 20060501, end: 20060501

REACTIONS (2)
  - CONSTIPATION [None]
  - FAECALOMA [None]
